FAERS Safety Report 21990128 (Version 3)
Quarter: 2023Q1

REPORT INFORMATION
  Report Type: Spontaneous
  Country: US (occurrence: US)
  Receive Date: 20230214
  Receipt Date: 20230315
  Transmission Date: 20230417
  Serious: Yes (Hospitalization)
  Sender: FDA-Public Use
  Company Number: US-Eisai Medical Research-EC-2023-132500

PATIENT
  Age: 86 Year
  Sex: Female
  Weight: 54.42 kg

DRUGS (3)
  1. ARICEPT [Suspect]
     Active Substance: DONEPEZIL HYDROCHLORIDE
     Indication: Memory impairment
     Route: 048
     Dates: start: 20230115, end: 2023
  2. IBRANCE [Suspect]
     Active Substance: PALBOCICLIB
     Indication: Neoplasm malignant
     Dosage: 2 WEEKS ON/1 WEEK OFF
     Route: 065
     Dates: start: 202112
  3. IBRANCE [Suspect]
     Active Substance: PALBOCICLIB
     Dosage: 2 WEEKS ON/1 WEEK OFF
     Route: 065
     Dates: start: 202201

REACTIONS (8)
  - Ankle fracture [Recovered/Resolved]
  - Diarrhoea [Recovered/Resolved]
  - Vomiting [Recovered/Resolved]
  - Retching [Recovered/Resolved]
  - Fall [Recovered/Resolved]
  - Feeling abnormal [Recovered/Resolved]
  - Insomnia [Unknown]
  - Abnormal dreams [Unknown]

NARRATIVE: CASE EVENT DATE: 20230101
